FAERS Safety Report 21362406 (Version 4)
Quarter: 2023Q2

REPORT INFORMATION
  Report Type: Spontaneous
  Country: IT (occurrence: IT)
  Receive Date: 20220922
  Receipt Date: 20230409
  Transmission Date: 20230722
  Serious: Yes (Hospitalization, Other)
  Sender: FDA-Public Use
  Company Number: IT-JNJFOC-20211200802

PATIENT
  Age: 24 Year
  Sex: Male

DRUGS (3)
  1. COBICISTAT\DARUNAVIR ETHANOLATE [Suspect]
     Active Substance: COBICISTAT\DARUNAVIR ETHANOLATE
     Indication: Acute HIV infection
     Dosage: 1 DOSAGE FORM, DAILY
     Route: 048
     Dates: start: 20180206, end: 20180403
  2. RALTEGRAVIR [Suspect]
     Active Substance: RALTEGRAVIR
     Indication: Acute HIV infection
     Route: 048
     Dates: start: 20180206, end: 20180403
  3. EMTRICITABINE\TENOFOVIR DISOPROXIL FUMARATE [Suspect]
     Active Substance: EMTRICITABINE\TENOFOVIR DISOPROXIL FUMARATE
     Indication: Acute HIV infection
     Dosage: 1 DOSAGE FORM, DAILY
     Route: 048
     Dates: start: 20180206, end: 20180403

REACTIONS (2)
  - Folliculitis [Recovered/Resolved]
  - Immune reconstitution inflammatory syndrome [Unknown]

NARRATIVE: CASE EVENT DATE: 20180101
